FAERS Safety Report 8548604-9 (Version None)
Quarter: 2012Q3

REPORT INFORMATION
  Report Type: 
  Country: None (occurrence: None)
  Receive Date: 20120730
  Receipt Date: 20120726
  Transmission Date: 20120928
  Serious: Yes (Hospitalization, Other)
  Sender: FDA-Public Use
  Company Number: US-JNJFOC-20120600515

PATIENT
  Sex: Female
  Weight: 73.94 kg

DRUGS (24)
  1. ALL OTHER MEDICATION [Concomitant]
     Route: 048
     Dates: start: 20120101
  2. DILANTIN [Concomitant]
     Indication: CONVULSION
     Route: 048
     Dates: start: 20050101
  3. XANAX [Concomitant]
     Indication: ANXIETY
     Route: 048
     Dates: start: 20120101
  4. DOCUSATE SODIUM [Concomitant]
     Indication: ABNORMAL FAECES
  5. TRAMADOL HYDROCHLORIDE [Suspect]
     Indication: HEADACHE
     Route: 048
     Dates: start: 20120201
  6. IMDUR [Concomitant]
     Indication: CARDIAC DISORDER
     Route: 048
  7. METOLAZONE [Concomitant]
     Indication: DIURETIC THERAPY
     Route: 048
     Dates: start: 20120301
  8. FLONASE [Concomitant]
  9. XARELTO [Suspect]
     Indication: ATRIAL FIBRILLATION
     Route: 048
  10. XARELTO [Suspect]
     Route: 048
     Dates: start: 20120514
  11. METOPROLOL TARTRATE [Concomitant]
     Indication: CARDIAC DISORDER
     Route: 048
     Dates: start: 20050101
  12. PRAVASTAN [Concomitant]
     Indication: BLOOD CHOLESTEROL
     Route: 048
     Dates: start: 20080101
  13. DALIRESP [Concomitant]
  14. XARELTO [Suspect]
     Route: 048
  15. POTASSIUM CHLORIDE [Concomitant]
     Indication: BLOOD POTASSIUM DECREASED
     Route: 048
     Dates: start: 20090101
  16. SPIRIVA [Concomitant]
  17. CALCIUM [Concomitant]
     Route: 048
     Dates: start: 20080101
  18. SYMBICORT [Concomitant]
     Indication: CHRONIC OBSTRUCTIVE PULMONARY DISEASE
     Route: 048
     Dates: start: 20110101
  19. LASIX [Concomitant]
     Indication: DIURETIC THERAPY
     Route: 048
     Dates: start: 20120101
  20. DIGOXIN [Concomitant]
     Indication: CARDIAC DISORDER
     Route: 048
     Dates: start: 20120101
  21. SYMBICORT [Concomitant]
  22. SPIRIVA [Concomitant]
     Indication: CHRONIC OBSTRUCTIVE PULMONARY DISEASE
     Route: 048
     Dates: start: 20120101
  23. ASPIRIN [Concomitant]
     Indication: THROMBOSIS PROPHYLAXIS
     Route: 048
     Dates: start: 20050101
  24. ALLOPURINOL [Concomitant]
     Indication: GOUT
     Route: 048
     Dates: start: 20120101

REACTIONS (6)
  - EPISTAXIS [None]
  - BLOOD POTASSIUM DECREASED [None]
  - ADVERSE EVENT [None]
  - VISION BLURRED [None]
  - HEADACHE [None]
  - CONSTIPATION [None]
